FAERS Safety Report 18466629 (Version 3)
Quarter: 2020Q4

REPORT INFORMATION
  Report Type: Spontaneous
  Country: FR (occurrence: FR)
  Receive Date: 20201105
  Receipt Date: 20201109
  Transmission Date: 20210114
  Serious: Yes (Other)
  Sender: FDA-Public Use
  Company Number: FR-REGENERON PHARMACEUTICALS, INC.-2020-84929

PATIENT

DRUGS (3)
  1. PRALUENT [Suspect]
     Active Substance: ALIROCUMAB
     Indication: PRODUCT USED FOR UNKNOWN INDICATION
     Dosage: 75 MG
     Dates: start: 2020, end: 2020
  2. KARDEGIC [Concomitant]
     Active Substance: ASPIRIN DL-LYSINE
     Indication: MYOCARDIAL INFARCTION
  3. CRESTOR [Concomitant]
     Active Substance: ROSUVASTATIN CALCIUM
     Indication: PRODUCT USED FOR UNKNOWN INDICATION

REACTIONS (16)
  - Nausea [Unknown]
  - Injection site pain [Unknown]
  - Hyperhidrosis [Unknown]
  - Toothache [Unknown]
  - Hypoacusis [Unknown]
  - Arthralgia [Unknown]
  - Palpitations [Unknown]
  - Angina pectoris [Unknown]
  - Dry skin [Unknown]
  - Headache [Unknown]
  - Balance disorder [Unknown]
  - Skin atrophy [Unknown]
  - Fall [Unknown]
  - Pain in extremity [Unknown]
  - Foreign body sensation in eyes [Unknown]
  - Pruritus [Unknown]

NARRATIVE: CASE EVENT DATE: 2020
